FAERS Safety Report 8452552-2 (Version None)
Quarter: 2012Q2

REPORT INFORMATION
  Report Type: 
  Country: None (occurrence: None)
  Receive Date: 20120620
  Receipt Date: 20120415
  Transmission Date: 20120825
  Serious: No
  Sender: FDA-Public Use
  Company Number: US-VERTEX PHARMACEUTICALS INC.-AE-2012-005470

PATIENT
  Sex: Female
  Weight: 101.7 kg

DRUGS (10)
  1. ALLEGRA [Concomitant]
     Indication: HYPERSENSITIVITY
     Route: 048
  2. LYRICA [Concomitant]
     Indication: FIBROMYALGIA
     Route: 048
  3. RIBAVIRIN [Concomitant]
     Indication: HEPATITIS C
     Route: 048
     Dates: start: 20120414
  4. PEGASYS [Concomitant]
     Indication: HEPATITIS C
     Route: 058
     Dates: start: 20120414
  5. NARCO [Concomitant]
     Indication: PAIN
     Route: 048
  6. ADDERALL 5 [Concomitant]
     Indication: ATTENTION DEFICIT/HYPERACTIVITY DISORDER
     Route: 048
  7. LITHIUM [Concomitant]
     Indication: BIPOLAR DISORDER
     Route: 048
  8. INCIVEK [Suspect]
     Indication: HEPATITIS C
     Route: 048
     Dates: start: 20120414
  9. XANAX [Concomitant]
     Indication: ANXIETY
     Route: 048
  10. EFFEXOR [Concomitant]

REACTIONS (5)
  - CHILLS [None]
  - RASH PRURITIC [None]
  - MUSCLE SPASMS [None]
  - PAIN [None]
  - ASTHENIA [None]
